FAERS Safety Report 9853926 (Version 1)
Quarter: 2014Q1

REPORT INFORMATION
  Report Type: Spontaneous
  Country: US (occurrence: US)
  Receive Date: 20140129
  Receipt Date: 20140129
  Transmission Date: 20141002
  Serious: No
  Sender: FDA-Public Use
  Company Number: US-TEVA-459263USA

PATIENT
  Sex: Male
  Weight: 22.7 kg

DRUGS (4)
  1. QVAR [Suspect]
     Indication: ASTHMA
  2. XOPENEX [Concomitant]
     Indication: ASTHMA
  3. ZYRTEC [Concomitant]
  4. SINGULAIR [Concomitant]

REACTIONS (2)
  - Wheezing [Recovered/Resolved]
  - Device malfunction [Unknown]
